FAERS Safety Report 9375939 (Version 2)
Quarter: 2013Q3

REPORT INFORMATION
  Report Type: Spontaneous
  Country: US (occurrence: US)
  Receive Date: 20130628
  Receipt Date: 20130722
  Transmission Date: 20140515
  Serious: Yes (Hospitalization)
  Sender: FDA-Public Use
  Company Number: US-GILEAD-2013-0078058

PATIENT
  Sex: Male

DRUGS (4)
  1. LETAIRIS [Suspect]
     Indication: PULMONARY HYPERTENSION
     Dosage: 10 MG, QD
     Dates: start: 20120531
  2. LETAIRIS [Suspect]
     Indication: CORONARY ARTERY DISEASE
  3. LETAIRIS [Suspect]
     Indication: RENAL FAILURE CHRONIC
  4. LETAIRIS [Suspect]
     Indication: HEPATITIS C

REACTIONS (2)
  - Pneumonia [Unknown]
  - Heart rate irregular [Unknown]
